FAERS Safety Report 9355433 (Version 1)
Quarter: 2013Q2

REPORT INFORMATION
  Report Type: Spontaneous
  Country: US (occurrence: US)
  Receive Date: 20130619
  Receipt Date: 20130619
  Transmission Date: 20140414
  Serious: Yes (Other)
  Sender: FDA-Public Use
  Company Number: US-PFIZER INC-2013181994

PATIENT
  Age: 64 Year
  Sex: Female

DRUGS (3)
  1. EFFEXOR XR [Suspect]
     Indication: DEPRESSION
     Dosage: 150 MG, UNK
  2. EFFEXOR XR [Suspect]
     Indication: ANXIETY
  3. TRICOR [Concomitant]
     Dosage: 140 MG, UNK

REACTIONS (2)
  - Chronic obstructive pulmonary disease [Unknown]
  - Cardiac disorder [Unknown]
